FAERS Safety Report 9772866 (Version 1)
Quarter: 2013Q4

REPORT INFORMATION
  Report Type: Spontaneous
  Country: US (occurrence: US)
  Receive Date: 20131219
  Receipt Date: 20131219
  Transmission Date: 20140711
  Serious: No
  Sender: FDA-Public Use
  Company Number: US-PFIZER INC-2013361475

PATIENT
  Sex: 0

DRUGS (7)
  1. CEFAZOLIN [Suspect]
     Dosage: UNK
  2. PHENYTOIN [Suspect]
     Dosage: UNK
  3. VANCOMYCIN HCL [Suspect]
     Dosage: UNK
  4. IODINE [Suspect]
     Dosage: UNK
  5. MOXIFLOXACIN [Suspect]
     Dosage: UNK
  6. CODEINE [Suspect]
     Dosage: UNK
  7. HYDROCODONE W/ACETAMINOPHEN [Suspect]
     Dosage: UNK

REACTIONS (1)
  - Drug hypersensitivity [Unknown]
